FAERS Safety Report 5334174-5 (Version None)
Quarter: 2007Q2

REPORT INFORMATION
  Report Type: 
  Country: None (occurrence: None)
  Receive Date: 20070523
  Receipt Date: 20070523
  Transmission Date: 20071010
  Serious: Yes (Other)
  Sender: FDA-Public Use
  Company Number: None

PATIENT
  Age: 38 Year
  Sex: Female
  Weight: 65.7716 kg

DRUGS (2)
  1. CLOMID [Suspect]
     Indication: INFERTILITY
     Dosage: 50MG PO QD X 5D
     Route: 048
     Dates: start: 20060701
  2. CLOMID [Suspect]
     Indication: INFERTILITY
     Dosage: 50MG PO QD X 5D
     Route: 048
     Dates: start: 20060801

REACTIONS (1)
  - MAJOR DEPRESSION [None]
